FAERS Safety Report 8486985-5 (Version None)
Quarter: 2012Q3

REPORT INFORMATION
  Report Type: 
  Country: None (occurrence: None)
  Receive Date: 20120704
  Receipt Date: 20120628
  Transmission Date: 20120928
  Serious: Yes (Hospitalization)
  Sender: FDA-Public Use
  Company Number: PHHY2012BR056222

PATIENT
  Sex: Male

DRUGS (12)
  1. ATORVASTATIN [Concomitant]
     Indication: BLOOD CHOLESTEROL ABNORMAL
     Dosage: 1 DF, A DAY
  2. EXELON [Suspect]
     Dosage: UNK UKN, UNK
     Route: 062
  3. DIOVAN [Suspect]
     Dosage: 40 MG, UNK
  4. STALEVO 100 [Suspect]
     Indication: PARKINSON'S DISEASE
     Dosage: 5 DF (200/150/37.5 MG), A DAY
     Route: 048
  5. CLORANA [Concomitant]
     Indication: HYPERTENSION
     Dosage: 1 DF, A DAY
  6. SEROQUEL [Concomitant]
     Indication: DEMENTIA
     Dosage: 1 DF, AFTER DINNER
  7. CLOPIDOGREL [Concomitant]
     Dosage: 20 MG, ONE TABLET A DAY AFTER LUNCH
  8. DIOVAN [Suspect]
     Dosage: 160 MG, UNK
  9. MEMANTINE HYDROCHLORIDE [Concomitant]
     Indication: DEMENTIA
     Dosage: 10 MG, TWO TABLETS A DAY
  10. NITROFURANTOIN [Concomitant]
     Indication: ANTIBIOTIC PROPHYLAXIS
     Dosage: 1 DF, A DAY
  11. TRILEPTAL [Suspect]
     Indication: CONVULSION
     Dosage: 300 MG, TWO TABLETS A DAY
     Route: 048
  12. LEVOTHYROXINE SODIUM [Concomitant]
     Indication: HYPOTHYROIDISM
     Dosage: 1 DF, A DAY

REACTIONS (3)
  - DERMATITIS ALLERGIC [None]
  - PROSTATITIS [None]
  - URINARY TRACT INFECTION [None]
